FAERS Safety Report 9436239 (Version 4)
Quarter: 2013Q3

REPORT INFORMATION
  Report Type: Spontaneous
  Country: GB (occurrence: GB)
  Receive Date: 20130802
  Receipt Date: 20130902
  Transmission Date: 20140515
  Serious: Yes (Hospitalization, Other)
  Sender: FDA-Public Use
  Company Number: GB-ABBOTT-13X-167-1127408-00

PATIENT
  Age: 37 Year
  Sex: Male

DRUGS (4)
  1. EPILIM CHRONO [Suspect]
     Indication: EPILEPSY
     Route: 048
     Dates: start: 201207
  2. LORATADINE [Interacting]
     Indication: SEASONAL ALLERGY
     Route: 048
  3. CETRIZINE [Concomitant]
     Indication: PRODUCT USED FOR UNKNOWN INDICATION
  4. FLUOXETINE [Concomitant]
     Indication: PRODUCT USED FOR UNKNOWN INDICATION

REACTIONS (3)
  - Drug interaction [Unknown]
  - Convulsion [Recovered/Resolved]
  - Drug dispensing error [Unknown]
